FAERS Safety Report 11926702 (Version 2)
Quarter: 2016Q2

REPORT INFORMATION
  Report Type: Spontaneous
  Country: PA (occurrence: PA)
  Receive Date: 20160119
  Receipt Date: 20160425
  Transmission Date: 20160815
  Serious: Yes (Death, Hospitalization, Other)
  Sender: FDA-Public Use
  Company Number: PA-SA-2016SA008678

PATIENT
  Age: 42 Year
  Sex: Male
  Weight: 42 kg

DRUGS (1)
  1. FABRAZYME [Suspect]
     Active Substance: AGALSIDASE BETA
     Indication: FABRY^S DISEASE
     Route: 041
     Dates: start: 20150206, end: 20160107

REACTIONS (7)
  - Peritonitis [Fatal]
  - Blood urea increased [Fatal]
  - Renal failure [Fatal]
  - Blood creatinine increased [Fatal]
  - End stage renal disease [Unknown]
  - Myocardial infarction [Fatal]
  - Overdose [Unknown]

NARRATIVE: CASE EVENT DATE: 20150206
